FAERS Safety Report 7373004-7 (Version None)
Quarter: 2011Q1

REPORT INFORMATION
  Report Type: 
  Country: None (occurrence: None)
  Receive Date: 20110324
  Receipt Date: 20110310
  Transmission Date: 20110831
  Serious: Yes (Other)
  Sender: FDA-Public Use
  Company Number: PHHY2011US10899

PATIENT
  Sex: Male

DRUGS (5)
  1. GLEEVEC [Suspect]
     Indication: GASTRIC CANCER
     Dosage: 400 MG, QD
     Route: 048
     Dates: start: 20110108
  2. TRAZODONE [Concomitant]
  3. ZOLOFT [Concomitant]
  4. CLONAZEPAM [Concomitant]
  5. KLONOPIN [Concomitant]
     Dosage: AT BED TIME

REACTIONS (7)
  - URINARY TRACT INFECTION [None]
  - RASH PRURITIC [None]
  - RASH [None]
  - HYPOCHONDRIASIS [None]
  - DEPRESSION [None]
  - ANXIETY [None]
  - DIARRHOEA [None]
